FAERS Safety Report 8479959-1 (Version None)
Quarter: 2012Q2

REPORT INFORMATION
  Report Type: 
  Country: None (occurrence: None)
  Receive Date: 20120629
  Receipt Date: 20120620
  Transmission Date: 20120825
  Serious: Yes (Other)
  Sender: FDA-Public Use
  Company Number: US-ABBOTT-11P-163-0886042-00

PATIENT
  Sex: Male
  Weight: 84.444 kg

DRUGS (12)
  1. PROTONIX [Concomitant]
     Indication: PRODUCT USED FOR UNKNOWN INDICATION
  2. VICODIN [Concomitant]
     Indication: PRODUCT USED FOR UNKNOWN INDICATION
     Dosage: 5-500 MG TAB
  3. METOPROLOL SUCCINATE [Concomitant]
     Dosage: DAILY DOSE: 20MG
  4. BENICAR [Concomitant]
     Indication: BLOOD PRESSURE
  5. HUMIRA [Suspect]
     Indication: PSORIASIS
     Dates: start: 20110601
  6. PHENERGAN HCL [Concomitant]
     Indication: PRODUCT USED FOR UNKNOWN INDICATION
     Dosage: 25MG/ML SOL
  7. BENICAR [Concomitant]
     Dosage: DAILY DOSE: 20MG
  8. METOPROLOL SUCCINATE [Concomitant]
     Indication: BLOOD PRESSURE
  9. ASPIRIN [Concomitant]
     Indication: PRODUCT USED FOR UNKNOWN INDICATION
  10. LASIX [Concomitant]
     Indication: PRODUCT USED FOR UNKNOWN INDICATION
  11. AMBIEN [Concomitant]
     Indication: PRODUCT USED FOR UNKNOWN INDICATION
  12. HYDROCHLOROTHIAZIDE [Concomitant]
     Indication: PRODUCT USED FOR UNKNOWN INDICATION

REACTIONS (14)
  - DRUG EFFECT DECREASED [None]
  - HAEMATOCHEZIA [None]
  - DIZZINESS [None]
  - GASTROINTESTINAL HAEMORRHAGE [None]
  - GASTRIC HAEMORRHAGE [None]
  - FAECES DISCOLOURED [None]
  - DRY SKIN [None]
  - ARTERIOVENOUS MALFORMATION [None]
  - HAEMORRHAGIC ANAEMIA [None]
  - FATIGUE [None]
  - PORTAL HYPERTENSIVE GASTROPATHY [None]
  - RED BLOOD CELL COUNT DECREASED [None]
  - PSORIASIS [None]
  - VARICOSE VEIN [None]
